FAERS Safety Report 6433437-X (Version None)
Quarter: 2009Q4

REPORT INFORMATION
  Report Type: 
  Country: None (occurrence: None)
  Receive Date: 20091106
  Receipt Date: 20091106
  Transmission Date: 20100525
  Serious: Yes (Life-Threatening)
  Sender: FDA-Public Use
  Company Number: None

PATIENT
  Age: 49 Year
  Sex: Male
  Weight: 103 kg

DRUGS (1)
  1. ASPARGINASE UNKNOWN [Suspect]
     Indication: ACUTE LYMPHOCYTIC LEUKAEMIA
     Dosage: 10,000 UNITS IV BOLUS
     Route: 040
     Dates: start: 20091019, end: 20091027

REACTIONS (2)
  - BLOOD CREATININE INCREASED [None]
  - RETROPERITONEAL HAEMORRHAGE [None]
